FAERS Safety Report 9187741 (Version 1)
Quarter: 2013Q1

REPORT INFORMATION
  Report Type: Report from Study
  Country: MX (occurrence: MX)
  Receive Date: 20130325
  Receipt Date: 20130325
  Transmission Date: 20140127
  Serious: Yes (Other)
  Sender: FDA-Public Use
  Company Number: MX-ASTRAZENECA-2013SE17658

PATIENT
  Sex: 0

DRUGS (1)
  1. CRESTOR [Suspect]
     Indication: CRANIOCEREBRAL INJURY
     Route: 048

REACTIONS (1)
  - Blood creatine phosphokinase increased [Unknown]
